FAERS Safety Report 9345378 (Version 1)
Quarter: 2013Q2

REPORT INFORMATION
  Report Type: Spontaneous
  Country: US (occurrence: US)
  Receive Date: 20130613
  Receipt Date: 20130613
  Transmission Date: 20140414
  Serious: Yes (Hospitalization, Other)
  Sender: FDA-Public Use
  Company Number: US-B.I. PHARMACEUTICALS,INC./RIDGEFIELD-2013-BI-16597BP

PATIENT
  Age: 80 Year
  Sex: Female
  Weight: 46 kg

DRUGS (10)
  1. AGGRENOX [Suspect]
  2. BONIVA [Suspect]
  3. LYRICA [Suspect]
     Indication: SPINAL COLUMN STENOSIS
     Dosage: 225 MG
     Route: 048
     Dates: start: 200812
  4. LYRICA [Suspect]
     Indication: ARTHRITIS
     Dosage: 225 MG
     Dates: start: 2010
  5. LYRICA [Suspect]
     Indication: PAIN
  6. LYRICA [Suspect]
     Indication: FIBROMYALGIA
  7. ENALAPRIL [Concomitant]
     Indication: HYPERTENSION
     Dosage: 40 MG
     Route: 048
     Dates: start: 1985
  8. AMLODIPINE [Concomitant]
     Indication: HYPERTENSION
     Dosage: 40 MG
     Route: 048
  9. PROTONIX [Concomitant]
     Indication: ABDOMINAL DISCOMFORT
     Dosage: 80 MG
  10. PROLIA [Concomitant]
     Indication: OSTEOPOROSIS
     Route: 030

REACTIONS (15)
  - Cardiac failure congestive [Unknown]
  - Bronchitis [Unknown]
  - Rib fracture [Recovered/Resolved]
  - Pneumothorax [Recovered/Resolved]
  - Pneumonia [Recovered/Resolved]
  - Loss of consciousness [Unknown]
  - Asthma [Unknown]
  - Dyspnoea [Unknown]
  - Nausea [Unknown]
  - Eating disorder [Unknown]
  - Drug hypersensitivity [Unknown]
  - Drug dose omission [Unknown]
  - Dry mouth [Unknown]
  - Ocular hyperaemia [Not Recovered/Not Resolved]
  - Eye disorder [Unknown]
